FAERS Safety Report 17345729 (Version 3)
Quarter: 2020Q2

REPORT INFORMATION
  Report Type: Report from Study
  Country: US (occurrence: US)
  Receive Date: 20200129
  Receipt Date: 20200428
  Transmission Date: 20200713
  Serious: Yes (Death)
  Sender: FDA-Public Use
  Company Number: US-JNJFOC-20200137625

PATIENT
  Sex: Male

DRUGS (14)
  1. SPRAVATO [Suspect]
     Active Substance: ESKETAMINE
     Indication: DEPRESSION
     Dates: start: 20190911, end: 20190911
  2. SPRAVATO [Suspect]
     Active Substance: ESKETAMINE
     Dates: start: 20191023, end: 20191023
  3. SPRAVATO [Suspect]
     Active Substance: ESKETAMINE
     Dates: start: 20190918, end: 20190918
  4. SPRAVATO [Suspect]
     Active Substance: ESKETAMINE
     Dates: start: 20190926, end: 20190926
  5. SPRAVATO [Suspect]
     Active Substance: ESKETAMINE
     Dates: start: 20191113, end: 20191113
  6. VENLAFAXINE [Concomitant]
     Active Substance: VENLAFAXINE HYDROCHLORIDE
  7. LITHIUM. [Concomitant]
     Active Substance: LITHIUM
  8. SPRAVATO [Suspect]
     Active Substance: ESKETAMINE
     Dates: start: 20191016, end: 20191016
  9. TRAZODONE [Concomitant]
     Active Substance: TRAZODONE HYDROCHLORIDE
  10. SPRAVATO [Suspect]
     Active Substance: ESKETAMINE
     Dates: start: 20191030, end: 20191030
  11. HYDROXYZINE [Concomitant]
     Active Substance: HYDROXYZINE HYDROCHLORIDE
  12. SPRAVATO [Suspect]
     Active Substance: ESKETAMINE
     Dates: start: 20191002, end: 20191002
  13. SPRAVATO [Suspect]
     Active Substance: ESKETAMINE
     Dates: start: 20191106, end: 20191106
  14. SPRAVATO [Suspect]
     Active Substance: ESKETAMINE
     Dates: start: 20191009, end: 20191009

REACTIONS (1)
  - Road traffic accident [Fatal]
